FAERS Safety Report 7331450-1 (Version None)
Quarter: 2011Q1

REPORT INFORMATION
  Report Type: 
  Country: None (occurrence: None)
  Receive Date: 20110304
  Receipt Date: 20110221
  Transmission Date: 20110831
  Serious: Yes (Other)
  Sender: FDA-Public Use
  Company Number: BR-EISAI INC-E3810-04480-SPO-BR

PATIENT
  Age: 35 Year
  Sex: Female
  Weight: 62 kg

DRUGS (4)
  1. PARIET (RABEPRAZOLE) [Suspect]
     Indication: GASTRITIS
  2. PARIET (RABEPRAZOLE) [Suspect]
     Dosage: UNKNOWN
     Route: 048
     Dates: start: 20110217, end: 20110218
  3. YASMIN [Concomitant]
  4. SYNTHROID [Concomitant]

REACTIONS (5)
  - SWELLING FACE [None]
  - PRURITUS [None]
  - CHILLS [None]
  - DYSPNOEA [None]
  - INFLUENZA [None]
